FAERS Safety Report 25967202 (Version 1)
Quarter: 2025Q4

REPORT INFORMATION
  Report Type: Spontaneous
  Country: JP (occurrence: JP)
  Receive Date: 20251028
  Receipt Date: 20251028
  Transmission Date: 20260119
  Serious: Yes (Other)
  Sender: BEIGENE
  Company Number: JP-BEIGENE-BGN-2025-017188

PATIENT
  Age: 7 Decade

DRUGS (3)
  1. TEVIMBRA [Suspect]
     Active Substance: TISLELIZUMAB-JSGR
     Indication: Oesophageal carcinoma
     Dosage: 200 MILLIGRAM
  2. CISPLATIN [Suspect]
     Active Substance: CISPLATIN
     Indication: Oesophageal carcinoma
     Dosage: CYCLE 1
  3. FLUOROURACIL [Concomitant]
     Active Substance: FLUOROURACIL
     Indication: Oesophageal carcinoma
     Dosage: UNK

REACTIONS (3)
  - Renal impairment [Recovering/Resolving]
  - Hyponatraemia [Unknown]
  - Neutrophil count decreased [Recovering/Resolving]
